FAERS Safety Report 8467806-3 (Version None)
Quarter: 2012Q2

REPORT INFORMATION
  Report Type: 
  Country: None (occurrence: None)
  Receive Date: 20120626
  Receipt Date: 20120619
  Transmission Date: 20120825
  Serious: Yes (Life-Threatening)
  Sender: FDA-Public Use
  Company Number: IT-ROCHE-1080203

PATIENT
  Sex: Female

DRUGS (6)
  1. FLUOXETINE [Concomitant]
     Indication: DEPRESSION
     Dosage: DRUG REPORTED AS : FLUOXETINA CLORIDRATO
     Route: 048
  2. SIMVASTATIN [Concomitant]
     Route: 048
  3. RAMIPRIL [Concomitant]
  4. FLURAZEPAM HYDROCHLORIDE [Concomitant]
     Route: 048
  5. CLONAZEPAM [Suspect]
     Indication: INTENTIONAL OVERDOSE
     Route: 048
     Dates: start: 20120616, end: 20120616
  6. NEBIVOLOL [Concomitant]
     Route: 048

REACTIONS (2)
  - RESPIRATORY ACIDOSIS [None]
  - SOPOR [None]
